FAERS Safety Report 10415344 (Version 5)
Quarter: 2015Q1

REPORT INFORMATION
  Report Type: Spontaneous
  Country: US (occurrence: US)
  Receive Date: 20140828
  Receipt Date: 20150113
  Transmission Date: 20150720
  Serious: No
  Sender: FDA-Public Use
  Company Number: US-PFIZER INC-2014235714

PATIENT
  Age: 56 Year
  Sex: Male
  Weight: 123 kg

DRUGS (2)
  1. LIPITOR [Suspect]
     Active Substance: ATORVASTATIN CALCIUM
     Indication: BLOOD CHOLESTEROL INCREASED
     Dosage: 20 MG, 1X/DAY (AT BED TIME)
     Route: 048
  2. ATORVASTATIN CALCIUM. [Suspect]
     Active Substance: ATORVASTATIN CALCIUM
     Dosage: 20 MG, UNK

REACTIONS (9)
  - Oropharyngeal pain [Unknown]
  - Weight increased [Unknown]
  - Arthropathy [Unknown]
  - Swelling [Unknown]
  - Back pain [Unknown]
  - Rhinorrhoea [Unknown]
  - Headache [Unknown]
  - General physical health deterioration [Unknown]
  - Bone disorder [Unknown]

NARRATIVE: CASE EVENT DATE: 2010
